FAERS Safety Report 21001232 (Version 1)
Quarter: 2022Q2

REPORT INFORMATION
  Report Type: Report from Study
  Country: DE (occurrence: DE)
  Receive Date: 20220624
  Receipt Date: 20220624
  Transmission Date: 20220721
  Serious: Yes (Other)
  Sender: FDA-Public Use
  Company Number: DE-ARISTO PHARMA-ACETYLC202112132

PATIENT
  Age: 31 Year
  Sex: Male

DRUGS (4)
  1. ARIPIPRAZOLE [Interacting]
     Active Substance: ARIPIPRAZOLE
     Indication: Drug therapy
     Dosage: 5 MILLIGRAM, ONCE A DAY
     Route: 065
  2. SERTRALINE [Interacting]
     Active Substance: SERTRALINE HYDROCHLORIDE
     Indication: Drug therapy
     Dosage: 75 MILLIGRAM, ONCE A DAY
     Route: 065
  3. ACETYLCYSTEINE [Interacting]
     Active Substance: ACETYLCYSTEINE
     Indication: Prader-Willi syndrome
     Dosage: 600 MILLIGRAM, ONCE A DAY (AS A SINGLE DAILY DOSE )
     Route: 065
  4. ACETYLCYSTEINE [Interacting]
     Active Substance: ACETYLCYSTEINE
     Indication: Psychiatric symptom
     Dosage: (INCREASED UP TO A TARGET DOSE OF 1800MG DAILY , ONCE A DAY
     Route: 065

REACTIONS (4)
  - Condition aggravated [Unknown]
  - Drug interaction [Unknown]
  - Drug ineffective [Unknown]
  - Dermatillomania [Unknown]
